FAERS Safety Report 6396749-4 (Version None)
Quarter: 2009Q4

REPORT INFORMATION
  Report Type: 
  Country: None (occurrence: None)
  Receive Date: 20091012
  Receipt Date: 20090520
  Transmission Date: 20100525
  Serious: Yes (Hospitalization, Other)
  Sender: FDA-Public Use
  Company Number: US-ASTRAZENECA-2009UW12180

PATIENT
  Age: 76 Year
  Sex: Female

DRUGS (14)
  1. SYMBICORT [Suspect]
     Indication: ASTHMA
     Dosage: 160/4.5 UG 2 PUFFS TWO TIMES A DAY
     Route: 055
  2. SYMBICORT [Suspect]
     Indication: CHRONIC OBSTRUCTIVE PULMONARY DISEASE
     Dosage: 160/4.5 UG 2 PUFFS TWO TIMES A DAY
     Route: 055
  3. ALBUTEROL [Concomitant]
     Dosage: 0.083 % INHALED 3 TIMES A DAY
     Route: 055
  4. LISINOPRIL [Concomitant]
  5. CELEBREX [Concomitant]
  6. NEXIUM [Concomitant]
     Route: 048
  7. HYDROCODONE BITARTRATE AND ACETAMINOPHEN [Concomitant]
  8. CHLORD/ CLIDI [Concomitant]
     Indication: ABDOMINAL PAIN UPPER
  9. DOXAZOSIN MESYLATE [Concomitant]
  10. GABAPENTIN [Concomitant]
  11. POLY IRON [Concomitant]
  12. FUROSEMIDE [Concomitant]
  13. FORADIL [Concomitant]
     Route: 055
  14. SINGULAIR [Concomitant]

REACTIONS (1)
  - ASTHMA [None]
